FAERS Safety Report 9825858 (Version 1)
Quarter: 2014Q1

REPORT INFORMATION
  Report Type: Spontaneous
  Country: US (occurrence: None)
  Receive Date: 20140115
  Receipt Date: 20140115
  Transmission Date: 20141002
  Serious: Yes (Other)
  Sender: FDA-Public Use
  Company Number: 001654440A

PATIENT
  Age: 63 Year
  Sex: Female

DRUGS (2)
  1. MB* SKIN BRIGHTENING DECOLLETE+NECK TREATMENT SPF 15 [Suspect]
     Dosage: DERMAL
     Dates: start: 20131229
  2. DAILY VITAMIN [Concomitant]

REACTIONS (2)
  - Lip swelling [None]
  - Eye swelling [None]
